FAERS Safety Report 19229525 (Version 1)
Quarter: 2021Q2

REPORT INFORMATION
  Report Type: Other
  Country: GB (occurrence: GB)
  Receive Date: 20210507
  Receipt Date: 20210507
  Transmission Date: 20210717
  Serious: Yes (Hospitalization)
  Sender: FDA-Public Use
  Company Number: GB-ROCHE-2791835

PATIENT
  Age: 67 Year
  Sex: Female

DRUGS (8)
  1. LEVOTHYROXINE. [Concomitant]
     Active Substance: LEVOTHYROXINE
     Indication: THYROIDECTOMY
  2. ASPIRIN. [Concomitant]
     Active Substance: ASPIRIN
     Indication: ACUTE CORONARY SYNDROME
     Route: 048
     Dates: start: 20210303
  3. CANDESARTAN. [Concomitant]
     Active Substance: CANDESARTAN
  4. LOPERAMIDE [Concomitant]
     Active Substance: LOPERAMIDE
     Indication: HYPERTONIC BLADDER
  5. CLOPIDOGREL [Concomitant]
     Active Substance: CLOPIDOGREL BISULFATE
     Indication: ACUTE CORONARY SYNDROME
  6. PRALSETINIB. [Suspect]
     Active Substance: PRALSETINIB
     Indication: MEDULLARY THYROID CANCER
     Route: 048
     Dates: start: 20210218, end: 20210303
  7. PARACETAMOL [Concomitant]
     Active Substance: ACETAMINOPHEN
  8. RAMIPRIL. [Concomitant]
     Active Substance: RAMIPRIL
     Indication: HYPERTENSION
     Dates: start: 20210218

REACTIONS (3)
  - Electrocardiogram T wave inversion [Not Recovered/Not Resolved]
  - Troponin increased [Not Recovered/Not Resolved]
  - Electrocardiogram ST-T change [Not Recovered/Not Resolved]

NARRATIVE: CASE EVENT DATE: 20210304
